FAERS Safety Report 8348944-2 (Version None)
Quarter: 2012Q2

REPORT INFORMATION
  Report Type: 
  Country: None (occurrence: None)
  Receive Date: 20120510
  Receipt Date: 20120504
  Transmission Date: 20120825
  Serious: No
  Sender: FDA-Public Use
  Company Number: US-PFIZER INC-2012093720

PATIENT
  Sex: Female

DRUGS (4)
  1. PHENYTOIN [Suspect]
     Dosage: UNK
  2. POLYMYXIN B SULFATE [Suspect]
     Dosage: UNK
  3. OXYBUTYNIN [Suspect]
     Dosage: UNK
  4. NEOMYCIN SULFATE [Suspect]
     Dosage: UNK

REACTIONS (2)
  - URTICARIA [None]
  - PRURITUS [None]
